FAERS Safety Report 17046729 (Version 1)
Quarter: 2019Q4

REPORT INFORMATION
  Report Type: Spontaneous
  Country: US (occurrence: US)
  Receive Date: 20191119
  Receipt Date: 20191119
  Transmission Date: 20200122
  Serious: Yes (Other)
  Sender: FDA-Public Use
  Company Number: US-ROCHE-2392743

PATIENT
  Age: 76 Year
  Sex: Female

DRUGS (1)
  1. XOLAIR [Suspect]
     Active Substance: OMALIZUMAB
     Indication: ASTHMA
     Dosage: MONTHLY
     Route: 065
     Dates: start: 20190207

REACTIONS (3)
  - Pruritus [Unknown]
  - Haemolytic anaemia [Unknown]
  - Burning sensation [Unknown]
